FAERS Safety Report 17567897 (Version 1)
Quarter: 2020Q1

REPORT INFORMATION
  Report Type: Spontaneous
  Country: TR (occurrence: TR)
  Receive Date: 20200320
  Receipt Date: 20200320
  Transmission Date: 20200409
  Serious: Yes (Other)
  Sender: FDA-Public Use
  Company Number: TR-JUBILANT CADISTA PHARMACEUTICALS-2020JUB00088

PATIENT
  Age: 12 Year
  Sex: Female

DRUGS (1)
  1. OLANZAPINE. [Suspect]
     Active Substance: OLANZAPINE
     Indication: DRUG THERAPY
     Dosage: 2.5 MG, 1X/DAY
     Route: 065

REACTIONS (1)
  - Pleurothotonus [Recovered/Resolved]
